FAERS Safety Report 24223492 (Version 9)
Quarter: 2025Q3

REPORT INFORMATION
  Report Type: Spontaneous
  Country: US (occurrence: US)
  Receive Date: 20240819
  Receipt Date: 20250926
  Transmission Date: 20251020
  Serious: No
  Sender: VERTEX
  Company Number: US-VERTEX PHARMACEUTICALS-2024-013092

PATIENT
  Age: 45 Year
  Sex: Female

DRUGS (3)
  1. TRIKAFTA [Suspect]
     Active Substance: ELEXACAFTOR\IVACAFTOR\TEZACAFTOR
     Indication: Cystic fibrosis
     Route: 048
     Dates: start: 202407, end: 202502
  2. CAYSTON [Concomitant]
     Active Substance: AZTREONAM
  3. TOBI [Concomitant]
     Active Substance: TOBRAMYCIN

REACTIONS (8)
  - Liver function test increased [Recovered/Resolved]
  - Rash pruritic [Recovered/Resolved]
  - Weight increased [Recovering/Resolving]
  - Infective pulmonary exacerbation of cystic fibrosis [Not Recovered/Not Resolved]
  - Off label use [Unknown]
  - Frustration tolerance decreased [Unknown]
  - Crying [Unknown]
  - Depression [Unknown]
